FAERS Safety Report 18918051 (Version 1)
Quarter: 2021Q1

REPORT INFORMATION
  Report Type: Spontaneous
  Country: US (occurrence: US)
  Receive Date: 20210219
  Receipt Date: 20210219
  Transmission Date: 20210420
  Serious: No
  Sender: FDA-Public Use
  Company Number: US-PERRIGO-20US018024

PATIENT
  Age: 70 Year
  Sex: Male
  Weight: 117.91 kg

DRUGS (6)
  1. CORTISONE [Concomitant]
     Active Substance: CORTISONE
     Indication: DRY SKIN
  2. LOSARTAN. [Concomitant]
     Active Substance: LOSARTAN
     Indication: HYPERTENSION
     Dosage: UNKNOWN, UNKNOWN
     Route: 048
     Dates: start: 2017
  3. CORTISONE [Concomitant]
     Active Substance: CORTISONE
     Indication: ECZEMA
     Dosage: UNKNOWN, PRN
     Route: 061
     Dates: start: 1955
  4. KETOCONAZOLE. [Suspect]
     Active Substance: KETOCONAZOLE
     Indication: SKIN IRRITATION
     Dosage: SMALL AMOUNT, TWICE NIGHTLY
     Route: 061
     Dates: start: 202006, end: 202012
  5. CRESTOR [Concomitant]
     Active Substance: ROSUVASTATIN CALCIUM
     Indication: BLOOD CHOLESTEROL INCREASED
     Dosage: UNKNOWN, UNKNOWN
     Route: 048
     Dates: start: 2017
  6. KETOCONAZOLE. [Suspect]
     Active Substance: KETOCONAZOLE
     Indication: SEBORRHOEA

REACTIONS (4)
  - Application site pain [Recovered/Resolved]
  - Off label use [Recovered/Resolved]
  - Condition aggravated [Recovering/Resolving]
  - Hypersensitivity [Recovering/Resolving]

NARRATIVE: CASE EVENT DATE: 202006
